FAERS Safety Report 12175207 (Version 1)
Quarter: 2016Q1

REPORT INFORMATION
  Report Type: Spontaneous
  Country: DE (occurrence: DE)
  Receive Date: 20160314
  Receipt Date: 20160314
  Transmission Date: 20160526
  Serious: Yes (Hospitalization)
  Sender: FDA-Public Use
  Company Number: DE-JNJFOC-20160305999

PATIENT
  Age: 42 Year
  Sex: Female
  Weight: 60 kg

DRUGS (6)
  1. IBUPROFEN. [Concomitant]
     Active Substance: IBUPROFEN
     Indication: PAIN
     Route: 065
  2. QUENSYL [Concomitant]
     Active Substance: HYDROXYCHLOROQUINE
     Indication: POLYARTHRITIS
     Route: 048
     Dates: start: 20120423
  3. INDOMETHACIN. [Concomitant]
     Active Substance: INDOMETHACIN
     Indication: PAIN
     Route: 065
  4. METHOTREXATE [Concomitant]
     Active Substance: METHOTREXATE
     Indication: POLYARTHRITIS
     Route: 048
     Dates: start: 20140824
  5. SIMPONI [Suspect]
     Active Substance: GOLIMUMAB
     Indication: POLYARTHRITIS
     Route: 058
     Dates: start: 20151123
  6. PREDNISOLONE. [Concomitant]
     Active Substance: PREDNISOLONE
     Indication: POLYARTHRITIS
     Route: 048
     Dates: start: 20110620

REACTIONS (4)
  - Product use issue [Unknown]
  - Food intolerance [Recovering/Resolving]
  - Vestibular disorder [Recovered/Resolved]
  - Off label use [Unknown]

NARRATIVE: CASE EVENT DATE: 20160116
